FAERS Safety Report 21045475 (Version 1)
Quarter: 2022Q3

REPORT INFORMATION
  Report Type: Spontaneous
  Country: BR (occurrence: BR)
  Receive Date: 20220706
  Receipt Date: 20220706
  Transmission Date: 20221026
  Serious: Yes (Other)
  Sender: FDA-Public Use
  Company Number: BR-CELLTRION INC.-2022BR010540

PATIENT

DRUGS (12)
  1. TRUXIMA [Suspect]
     Active Substance: RITUXIMAB-ABBS
     Indication: Non-Hodgkin^s lymphoma
     Dosage: (THE INFUSION STARTED, FIRST INFUSION PROTOCOL: 50 ML/HOUR EVERY 30 MINUTES, UNTIL THE RANGE OF 400
     Route: 042
     Dates: start: 20220610, end: 20220610
  2. TRUXIMA [Suspect]
     Active Substance: RITUXIMAB-ABBS
     Dosage: (AFTER 138 MINUTES IN THE THERAPY CHANGE TO 100 MG/30 MINUTES)
     Route: 042
     Dates: start: 20220610, end: 20220610
  3. TRUXIMA [Suspect]
     Active Substance: RITUXIMAB-ABBS
     Dosage: (THE INFUSION RESTARTED WITH 75ML/30 MINUTES)
     Route: 042
     Dates: start: 20220610, end: 20220610
  4. VINCRISTINE [Concomitant]
     Active Substance: VINCRISTINE
     Indication: Non-Hodgkin^s lymphoma
     Dosage: 2MG - CYCLIC
     Route: 042
     Dates: start: 20220610, end: 20220610
  5. DOXORUBICIN [Concomitant]
     Active Substance: DOXORUBICIN
     Indication: Non-Hodgkin^s lymphoma
     Dosage: 83 MG, CYCLIC
     Route: 042
     Dates: start: 20220610, end: 20220610
  6. CYCLOPHOSPHAMIDE [Concomitant]
     Active Substance: CYCLOPHOSPHAMIDE
     Indication: Non-Hodgkin^s lymphoma
     Dosage: 1245 MG, CYCLIC
     Route: 042
     Dates: start: 20220610, end: 20220610
  7. ACETAMINOPHEN [Concomitant]
     Active Substance: ACETAMINOPHEN
     Indication: Chemotherapy side effect prophylaxis
     Dosage: 750 MG, CYCLIC
     Route: 048
     Dates: start: 20220610, end: 20220610
  8. DIPHENHYDRAMINE [Concomitant]
     Active Substance: DIPHENHYDRAMINE
     Indication: Chemotherapy side effect prophylaxis
     Dosage: 50 MG, CYCLIC
     Route: 042
     Dates: start: 20220610, end: 20220610
  9. DEXAMETHASONE [Concomitant]
     Active Substance: DEXAMETHASONE
     Indication: Chemotherapy side effect prophylaxis
     Dosage: 20 MG, CYCLIC
     Route: 042
     Dates: start: 20220610, end: 20220610
  10. ONDANSETRON [Concomitant]
     Active Substance: ONDANSETRON
     Indication: Chemotherapy side effect prophylaxis
     Dosage: 8 MG, CYCLIC
     Route: 042
     Dates: start: 20220610, end: 20220610
  11. OMEPRAZOLE [Concomitant]
     Active Substance: OMEPRAZOLE
     Indication: Antacid therapy
     Dosage: 20MG - ONCE PER DAY
     Route: 048
  12. ALLOPURINOL [Concomitant]
     Active Substance: ALLOPURINOL
     Dosage: 100MG, 12 HOURS/12/12 HOURS
     Route: 048

REACTIONS (2)
  - Hypersensitivity [Recovered/Resolved]
  - Underdose [Unknown]

NARRATIVE: CASE EVENT DATE: 20220610
